FAERS Safety Report 26083175 (Version 1)
Quarter: 2025Q4

REPORT INFORMATION
  Report Type: Spontaneous
  Country: GB (occurrence: GB)
  Receive Date: 20251124
  Receipt Date: 20251124
  Transmission Date: 20260118
  Serious: Yes (Life-Threatening, Disabling, Other)
  Sender: PFIZER
  Company Number: None

PATIENT
  Age: 52 Year
  Sex: Female

DRUGS (1)
  1. RIMEGEPANT [Suspect]
     Active Substance: RIMEGEPANT
     Indication: Hemiplegic migraine
     Dosage: 75 MG
     Dates: start: 20250317

REACTIONS (10)
  - Medication error [Unknown]
  - Vasoconstriction [Recovering/Resolving]
  - Carotidynia [Recovering/Resolving]
  - Autonomic neuropathy [Recovering/Resolving]
  - Pain [Recovering/Resolving]
  - Presyncope [Recovering/Resolving]
  - Weight decreased [Recovering/Resolving]
  - Mobility decreased [Recovering/Resolving]
  - Gait disturbance [Recovering/Resolving]
  - Intentional product misuse [Unknown]

NARRATIVE: CASE EVENT DATE: 20250101
